FAERS Safety Report 24829780 (Version 2)
Quarter: 2025Q1

REPORT INFORMATION
  Report Type: Spontaneous
  Country: CN (occurrence: CN)
  Receive Date: 20250110
  Receipt Date: 20250115
  Transmission Date: 20250408
  Serious: No
  Sender: ORGANON
  Company Number: CN-ORGANON-O2501CHN000196

PATIENT
  Age: 4 Year
  Sex: Male
  Weight: 22.5 kg

DRUGS (1)
  1. SINGULAIR [Suspect]
     Active Substance: MONTELUKAST SODIUM
     Indication: Bronchial hyperreactivity
     Dosage: 4MG, QD, ORAL
     Route: 048
     Dates: start: 20241209, end: 20241210

REACTIONS (1)
  - Mental disorder [Recovered/Resolved]

NARRATIVE: CASE EVENT DATE: 20241210
